FAERS Safety Report 13210485 (Version 1)
Quarter: 2017Q1

REPORT INFORMATION
  Report Type: Spontaneous
  Country: US (occurrence: US)
  Receive Date: 20170210
  Receipt Date: 20170210
  Transmission Date: 20170428
  Serious: Yes (Death, Other)
  Sender: FDA-Public Use
  Company Number: US-009507513-1702USA004403

PATIENT
  Age: 71 Year

DRUGS (2)
  1. DEXAMETHASONE. [Suspect]
     Active Substance: DEXAMETHASONE
     Dosage: UNK
     Route: 048
  2. ETOPOSIDE. [Suspect]
     Active Substance: ETOPOSIDE

REACTIONS (2)
  - Histiocytosis haematophagic [Fatal]
  - Drug ineffective [Fatal]
